FAERS Safety Report 24540245 (Version 1)
Quarter: 2024Q4

REPORT INFORMATION
  Report Type: Spontaneous
  Country: US (occurrence: US)
  Receive Date: 20241023
  Receipt Date: 20241023
  Transmission Date: 20250115
  Serious: No
  Sender: BAYER HEALTHCARE PHARMACEUTICALS INC.
  Company Number: US-BAYER-2024A151578

PATIENT
  Age: 63 Year
  Sex: Female

DRUGS (2)
  1. GADAVIST [Suspect]
     Active Substance: GADOBUTROL
     Indication: Urticaria
     Dosage: 7.5
     Dates: start: 20241022, end: 20241022
  2. GADAVIST [Suspect]
     Active Substance: GADOBUTROL
     Indication: Urticaria
     Dosage: 7.5 ML, ONCE
     Route: 042

REACTIONS (1)
  - Urticaria [Not Recovered/Not Resolved]

NARRATIVE: CASE EVENT DATE: 20241022
